FAERS Safety Report 8209917-3 (Version None)
Quarter: 2012Q1

REPORT INFORMATION
  Report Type: 
  Country: None (occurrence: None)
  Receive Date: 20120314
  Receipt Date: 20120302
  Transmission Date: 20120608
  Serious: No
  Sender: FDA-Public Use
  Company Number: US-BAYER-2012-021873

PATIENT
  Sex: Female

DRUGS (2)
  1. TYLENOL W/ CODEINE NO. 3 [Concomitant]
     Dosage: 2 DF, QD
     Route: 048
  2. ALEVE (CAPLET) [Suspect]
     Indication: SCIATIC NERVE NEUROPATHY
     Dosage: 3 DF, QD
     Route: 048

REACTIONS (1)
  - SCIATIC NERVE NEUROPATHY [None]
